FAERS Safety Report 25526408 (Version 2)
Quarter: 2025Q3

REPORT INFORMATION
  Report Type: Spontaneous
  Country: CA (occurrence: CA)
  Receive Date: 20250707
  Receipt Date: 20250814
  Transmission Date: 20251020
  Serious: Yes (Life-Threatening, Hospitalization, Other)
  Sender: PFIZER
  Company Number: CA-PFIZER INC-202500133701

PATIENT
  Age: 15 Year
  Sex: Male

DRUGS (1)
  1. METHOTREXATE SODIUM [Suspect]
     Active Substance: METHOTREXATE SODIUM
     Indication: T-cell type acute leukaemia
     Dosage: 7350 MG, DAILY (OVER 24 HOURS)
     Route: 042
     Dates: start: 20241125, end: 20241126

REACTIONS (6)
  - Productive cough [Recovered/Resolved]
  - Oropharyngeal pain [Recovered/Resolved]
  - Neutropenia [Recovered/Resolved]
  - Pyrexia [Recovered/Resolved]
  - Stomatitis [Recovered/Resolved]
  - Off label use [Unknown]

NARRATIVE: CASE EVENT DATE: 20241201
